FAERS Safety Report 4395763-8 (Version None)
Quarter: 2004Q3

REPORT INFORMATION
  Report Type: 
  Country: None (occurrence: None)
  Receive Date: 20040709
  Receipt Date: 20040701
  Transmission Date: 20050211
  Serious: Yes (Hospitalization)
  Sender: FDA-Public Use
  Company Number: S04-USA-03774-01

PATIENT
  Age: 24 Year
  Sex: Female

DRUGS (6)
  1. LEXAPRO [Suspect]
     Indication: DEPRESSION
     Dosage: 10 MG QD PO
     Route: 048
     Dates: start: 20040601, end: 20040626
  2. LEXAPRO [Suspect]
     Indication: DEPRESSION
     Dosage: 10 MG QD PO
     Route: 048
     Dates: start: 20040628, end: 20040701
  3. VIOXX [Concomitant]
  4. ELAVIL (AMITRIPTYLLINE HYDROCHLORIDE) [Concomitant]
  5. GABITRIL [Concomitant]
  6. ABILIFY [Concomitant]

REACTIONS (11)
  - AGGRESSION [None]
  - AMNESIA [None]
  - DIARRHOEA [None]
  - HYPERHIDROSIS [None]
  - HYPERTENSION [None]
  - MALAISE [None]
  - MOVEMENT DISORDER [None]
  - SOMATOFORM DISORDER [None]
  - TREMOR [None]
  - URTICARIA [None]
  - VOMITING [None]
